FAERS Safety Report 5309924-4 (Version None)
Quarter: 2007Q1

REPORT INFORMATION
  Report Type: 
  Country: None (occurrence: None)
  Receive Date: 20070201
  Receipt Date: 20061020
  Transmission Date: 20070707
  Serious: Yes (Other)
  Sender: FDA-Public Use
  Company Number: US-2006-002085

PATIENT
  Age: 21 Year
  Sex: Female
  Weight: 102 kg

DRUGS (4)
  1. MIRENA [Suspect]
     Indication: CONTRACEPTION
     Dosage: 20 UG/DAY, CONT, INTRA-UTERINE
     Route: 015
     Dates: start: 20040901
  2. TOPAMAX [Concomitant]
  3. ASTELIN [Concomitant]
  4. LISINOPRIL [Concomitant]

REACTIONS (3)
  - ABDOMINAL PAIN [None]
  - AMENORRHOEA [None]
  - WEIGHT INCREASED [None]
